FAERS Safety Report 25361951 (Version 2)
Quarter: 2025Q3

REPORT INFORMATION
  Report Type: Spontaneous
  Country: CN (occurrence: CN)
  Receive Date: 20250527
  Receipt Date: 20250803
  Transmission Date: 20251021
  Serious: Yes (Hospitalization)
  Sender: ALEXION PHARMACEUTICALS
  Company Number: CN-ASTRAZENECA-202505CHN016818CN

PATIENT
  Age: 79 Year
  Sex: Male
  Weight: 54 kg

DRUGS (4)
  1. BUDESONIDE [Suspect]
     Active Substance: BUDESONIDE
     Indication: Chronic obstructive pulmonary disease
     Dosage: 1 MILLIGRAM, BID
     Dates: start: 20250505, end: 20250514
  2. BUDESONIDE [Suspect]
     Active Substance: BUDESONIDE
     Indication: Obstructive airways disorder
  3. TERBUTALINE [Suspect]
     Active Substance: TERBUTALINE
     Indication: Chronic obstructive pulmonary disease
     Dosage: 5 MILLIGRAM, BID
     Dates: start: 20250505, end: 20250514
  4. TERBUTALINE [Suspect]
     Active Substance: TERBUTALINE
     Indication: Obstructive airways disorder

REACTIONS (2)
  - Palpitations [Recovered/Resolved]
  - Tremor [Recovered/Resolved]

NARRATIVE: CASE EVENT DATE: 20250514
